FAERS Safety Report 15530591 (Version 1)
Quarter: 2018Q4

REPORT INFORMATION
  Report Type: Spontaneous
  Country: US (occurrence: US)
  Receive Date: 20181018
  Receipt Date: 20181018
  Transmission Date: 20190205
  Serious: Yes (Other)
  Sender: FDA-Public Use
  Company Number: US-ALLERGAN-1849413US

PATIENT
  Age: 89 Year
  Sex: Male
  Weight: 55.79 kg

DRUGS (1)
  1. FLUOROMETHOLONE, 0.1% [Suspect]
     Active Substance: FLUOROMETHOLONE
     Indication: CORNEAL TRANSPLANT
     Dosage: 1 GTT, QD
     Route: 047

REACTIONS (5)
  - Blindness unilateral [Unknown]
  - Eye operation [Unknown]
  - Cataract [Unknown]
  - Product packaging quantity issue [Unknown]
  - Off label use [Unknown]
